FAERS Safety Report 23716816 (Version 1)
Quarter: 2024Q2

REPORT INFORMATION
  Report Type: Spontaneous
  Country: ES (occurrence: ES)
  Receive Date: 20240408
  Receipt Date: 20240408
  Transmission Date: 20240715
  Serious: Yes (Other)
  Sender: FDA-Public Use
  Company Number: None

PATIENT
  Age: 67 Year
  Sex: Male

DRUGS (3)
  1. LEVOFLOXACIN [Suspect]
     Active Substance: LEVOFLOXACIN
     Indication: Pneumonia
     Dosage: LEVOFLOXACIN TEVA , EFG FILM-COATED TABLETS, 14 TABLETS
     Route: 048
     Dates: start: 20240121, end: 20240128
  2. LORAZEPAM [Concomitant]
     Active Substance: LORAZEPAM
     Indication: Product used for unknown indication
     Dosage: 50 TABLETS
     Route: 048
     Dates: start: 20170317
  3. DEPRAX [Concomitant]
     Indication: Product used for unknown indication
     Dosage: EFG FILM-COATED TABLETS, 60 TABLETS
     Route: 048
     Dates: start: 20160111

REACTIONS (3)
  - Back pain [Recovering/Resolving]
  - Myalgia [Recovering/Resolving]
  - Muscular weakness [Recovering/Resolving]

NARRATIVE: CASE EVENT DATE: 20240126
